FAERS Safety Report 23278122 (Version 1)
Quarter: 2023Q4

REPORT INFORMATION
  Report Type: Spontaneous
  Country: US (occurrence: None)
  Receive Date: 20231207
  Receipt Date: 20231207
  Transmission Date: 20240109
  Serious: Yes (Disabling)
  Sender: FDA-Public Use
  Company Number: None

PATIENT
  Age: 22 Year
  Sex: Male
  Weight: 76.5 kg

DRUGS (3)
  1. CIPROFLOXACIN\DEXAMETHASONE [Suspect]
     Active Substance: CIPROFLOXACIN\DEXAMETHASONE
     Indication: Ear inflammation
     Dosage: OTHER QUANTITY : 1 DROP(S);?FREQUENCY : TWICE A DAY;?
     Route: 001
     Dates: start: 20230913, end: 20230919
  2. MAGNESIUM [Concomitant]
     Active Substance: MAGNESIUM
  3. B12 COMPLEX [Concomitant]

REACTIONS (3)
  - Hyperacusis [None]
  - Neuropathy peripheral [None]
  - Tinnitus [None]

NARRATIVE: CASE EVENT DATE: 20230822
